FAERS Safety Report 25279040 (Version 1)
Quarter: 2025Q2

REPORT INFORMATION
  Report Type: Spontaneous
  Country: GB (occurrence: GB)
  Receive Date: 20250507
  Receipt Date: 20250507
  Transmission Date: 20250717
  Serious: Yes (Hospitalization)
  Sender: EISAI
  Company Number: GB-Eisai-EC-2025-188496

PATIENT
  Age: 59 Year
  Sex: Female
  Weight: 63.1 kg

DRUGS (2)
  1. LENVATINIB [Suspect]
     Active Substance: LENVATINIB
     Indication: Thymic carcinoma
     Dates: start: 20240824
  2. LENVATINIB [Suspect]
     Active Substance: LENVATINIB
     Dates: start: 20240919, end: 20250129

REACTIONS (3)
  - Lower respiratory tract infection [Recovered/Resolved]
  - Haemoptysis [Recovered/Resolved]
  - Diarrhoea [Recovered/Resolved]

NARRATIVE: CASE EVENT DATE: 20250129
